FAERS Safety Report 5496182-3 (Version None)
Quarter: 2007Q3

REPORT INFORMATION
  Report Type: 
  Country: None (occurrence: None)
  Receive Date: 20070926
  Receipt Date: 20070926
  Transmission Date: 20080115
  Serious: Yes (Other)
  Sender: FDA-Public Use
  Company Number: None

PATIENT
  Sex: Female
  Weight: 106 kg

DRUGS (1)
  1. MIRENA BAYER [Suspect]
     Indication: CONTRACEPTION
     Dosage: 1 DEVIDE INTRA-UTERI
     Route: 015
     Dates: start: 20041212, end: 20070323

REACTIONS (3)
  - ACTIVITIES OF DAILY LIVING IMPAIRED [None]
  - BLOOD INSULIN INCREASED [None]
  - WEIGHT INCREASED [None]
